FAERS Safety Report 6101754-9 (Version None)
Quarter: 2009Q1

REPORT INFORMATION
  Report Type: 
  Country: None (occurrence: None)
  Receive Date: 20090304
  Receipt Date: 20090227
  Transmission Date: 20090719
  Serious: Yes (Hospitalization)
  Sender: FDA-Public Use
  Company Number: B0562610A

PATIENT
  Age: 62 Year
  Sex: Male

DRUGS (5)
  1. CIBLOR [Suspect]
     Indication: DRUG USE FOR UNKNOWN INDICATION
     Dosage: 3G PER DAY
     Route: 048
     Dates: start: 20090106, end: 20090113
  2. VASTAREL [Suspect]
     Indication: DRUG USE FOR UNKNOWN INDICATION
     Dosage: 70MG PER DAY
     Route: 048
     Dates: start: 20090106, end: 20090126
  3. SOLUPRED [Concomitant]
  4. SYMBICORT [Concomitant]
  5. MUCOMYST [Concomitant]

REACTIONS (14)
  - ANAEMIA [None]
  - ANAEMIA HAEMOLYTIC AUTOIMMUNE [None]
  - ANTI-ERYTHROPOIETIN ANTIBODY [None]
  - CHEST PAIN [None]
  - CONJUNCTIVAL DISCOLOURATION [None]
  - DYSPNOEA [None]
  - DYSPNOEA EXERTIONAL [None]
  - GAIT DISTURBANCE [None]
  - HAEMOGLOBIN ABNORMAL [None]
  - HAPTOGLOBIN DECREASED [None]
  - NORMOCHROMIC NORMOCYTIC ANAEMIA [None]
  - PAIN IN EXTREMITY [None]
  - RETICULOCYTE COUNT INCREASED [None]
  - TACHYCARDIA [None]
